FAERS Safety Report 6527716-5 (Version None)
Quarter: 2010Q1

REPORT INFORMATION
  Report Type: 
  Country: None (occurrence: None)
  Receive Date: 20100106
  Receipt Date: 20091228
  Transmission Date: 20100710
  Serious: Yes (Hospitalization)
  Sender: FDA-Public Use
  Company Number: US-BIOGENIDEC-2009BI042252

PATIENT
  Age: 38 Year
  Sex: Female

DRUGS (1)
  1. TYSABRI [Suspect]
     Indication: CROHN'S DISEASE
     Route: 042
     Dates: start: 20090520

REACTIONS (5)
  - CROHN'S DISEASE [None]
  - DELAYED RECOVERY FROM ANAESTHESIA [None]
  - DEVICE RELATED INFECTION [None]
  - FUNGAL INFECTION [None]
  - PNEUMONIA [None]
